FAERS Safety Report 23292736 (Version 5)
Quarter: 2024Q1

REPORT INFORMATION
  Report Type: Report from Study
  Country: US (occurrence: US)
  Receive Date: 20231213
  Receipt Date: 20240313
  Transmission Date: 20240410
  Serious: Yes (Other)
  Sender: FDA-Public Use
  Company Number: US-HORIZON THERAPEUTICS-HZN-2023-007951

PATIENT

DRUGS (14)
  1. TEPEZZA [Suspect]
     Active Substance: TEPROTUMUMAB-TRBW
     Indication: Endocrine ophthalmopathy
     Dosage: 1180 MG, EVERY 3 WEEKS, 1ST INFUSION
     Route: 042
     Dates: start: 20230907
  2. TEPEZZA [Suspect]
     Active Substance: TEPROTUMUMAB-TRBW
     Indication: Graves^ disease
     Dosage: 2360 MG, EVERY 3 WEEKS, SECOND INFUSION
     Route: 042
     Dates: start: 20230928
  3. TEPEZZA [Suspect]
     Active Substance: TEPROTUMUMAB-TRBW
     Dosage: 2360 MG (20MG/KG)
     Route: 042
     Dates: start: 20231019
  4. TEPEZZA [Suspect]
     Active Substance: TEPROTUMUMAB-TRBW
     Dosage: 2360 MG (20MG/KG)
     Route: 042
     Dates: start: 20231107
  5. TEPEZZA [Suspect]
     Active Substance: TEPROTUMUMAB-TRBW
     Dosage: 2360 MG (20MG/KG)
     Route: 042
     Dates: start: 20231130
  6. TEPEZZA [Suspect]
     Active Substance: TEPROTUMUMAB-TRBW
     Dosage: 2360 MG
     Route: 042
  7. JARDIANCE [Concomitant]
     Active Substance: EMPAGLIFLOZIN
     Dosage: 25 MG
     Route: 048
  8. MOUNJARO [Concomitant]
     Active Substance: TIRZEPATIDE
  9. PANTOPRAZOLE SODIUM [Concomitant]
     Active Substance: PANTOPRAZOLE SODIUM
     Route: 065
  10. ATORVASTATIN CALCIUM [Concomitant]
     Active Substance: ATORVASTATIN CALCIUM
     Route: 065
  11. PREGABALIN [Concomitant]
     Active Substance: PREGABALIN
     Route: 065
  12. HYDROCHLOROTHIAZIDE [Concomitant]
     Active Substance: HYDROCHLOROTHIAZIDE
     Route: 065
  13. POTASSIUM CHLORIDE [Concomitant]
     Active Substance: POTASSIUM CHLORIDE
     Route: 065
  14. AMLODIPINE BESYLATE;BENAZEPRIL [Concomitant]
     Route: 065

REACTIONS (14)
  - Diabetes mellitus [Unknown]
  - Blood glucose increased [Recovering/Resolving]
  - Feeling cold [Not Recovered/Not Resolved]
  - Vertigo [Not Recovered/Not Resolved]
  - Dry mouth [Not Recovered/Not Resolved]
  - Visual impairment [Recovering/Resolving]
  - Diplopia [Recovered/Resolved]
  - Vision blurred [Recovering/Resolving]
  - Eye irritation [Recovering/Resolving]
  - Vitreous floaters [Unknown]
  - Alopecia [Unknown]
  - Muscle spasms [Unknown]
  - Fatigue [Not Recovered/Not Resolved]
  - Dysgeusia [Not Recovered/Not Resolved]

NARRATIVE: CASE EVENT DATE: 20230101
